FAERS Safety Report 9229282 (Version 1)
Quarter: 2013Q2

REPORT INFORMATION
  Report Type: Spontaneous
  Country: US (occurrence: US)
  Receive Date: 20130412
  Receipt Date: 20130412
  Transmission Date: 20140414
  Serious: Yes (Hospitalization, Other)
  Sender: FDA-Public Use
  Company Number: US-ASTELLAS-2013US003895

PATIENT
  Age: 1 Year
  Sex: Female

DRUGS (7)
  1. PROGRAF [Suspect]
     Indication: LIVER TRANSPLANT
     Dosage: UNK
     Route: 065
  2. ORAPRED [Suspect]
     Indication: LIVER TRANSPLANT
     Dosage: UNK
     Route: 065
  3. TYLENOL /00020001/ [Suspect]
     Indication: PRODUCT USED FOR UNKNOWN INDICATION
     Dosage: UNK
     Route: 065
  4. TYLENOL WITH CODEINE [Suspect]
     Indication: PRODUCT USED FOR UNKNOWN INDICATION
     Dosage: UNK
     Route: 065
  5. TYLENOL /00020001/ [Suspect]
     Indication: AGITATION
     Dosage: 100 MG, Q6 HOURS
     Route: 048
  6. TYLENOL /00020001/ [Suspect]
     Indication: PAIN
  7. CELLCEPT                           /01275102/ [Concomitant]
     Indication: LIVER TRANSPLANT
     Dosage: UNK
     Route: 065

REACTIONS (4)
  - Renal tubular acidosis [Unknown]
  - Hypertension [Recovered/Resolved]
  - Diarrhoea [Unknown]
  - Metabolic acidosis [Unknown]
